FAERS Safety Report 23161221 (Version 4)
Quarter: 2023Q4

REPORT INFORMATION
  Report Type: Report from Study
  Country: KR (occurrence: KR)
  Receive Date: 20231108
  Receipt Date: 20231207
  Transmission Date: 20240109
  Serious: Yes (Hospitalization, Other)
  Sender: FDA-Public Use
  Company Number: KR-009507513-2309KOR007675

PATIENT
  Age: 72 Year
  Sex: Male
  Weight: 54 kg

DRUGS (19)
  1. SACITUZUMAB GOVITECAN-HZIY [Suspect]
     Active Substance: SACITUZUMAB GOVITECAN-HZIY
     Indication: Non-small cell lung cancer metastatic
     Dosage: 10MG/KG ON DAYS 1 AND 8, Q3W
     Route: 042
     Dates: start: 20230803, end: 20230914
  2. SACITUZUMAB GOVITECAN-HZIY [Suspect]
     Active Substance: SACITUZUMAB GOVITECAN-HZIY
     Dosage: 10MG/KG ON DAYS 1 AND 8, Q3W
     Route: 042
     Dates: start: 20231004
  3. PEMBROLIZUMAB [Suspect]
     Active Substance: PEMBROLIZUMAB
     Indication: Non-small cell lung cancer metastatic
     Dosage: 200 MILLIGRAM, Q3W
     Route: 042
     Dates: start: 20230803, end: 20230914
  4. PEMBROLIZUMAB [Suspect]
     Active Substance: PEMBROLIZUMAB
     Dosage: 200 MG, Q3W
     Route: 042
     Dates: start: 20231004
  5. PARAMACET ER SEMI [Concomitant]
     Indication: Prophylaxis
     Dosage: 325 MILLIGRAM, BID
     Route: 048
     Dates: start: 20230706
  6. RECOMID SR [Concomitant]
     Indication: Prophylaxis
     Dosage: 150 MILLIGRAM, TID
     Route: 048
     Dates: start: 20230706
  7. KALOMIN S [Concomitant]
     Indication: Prophylaxis
     Dosage: 20 MILLIGRAM, TID
     Route: 048
     Dates: start: 20230706
  8. KAMISTAD-GEL N [Concomitant]
     Indication: Stomatitis
     Dosage: 1 GRAM, QD
     Route: 002
     Dates: start: 20230824, end: 20230913
  9. DEXAMETHASONE [Concomitant]
     Active Substance: DEXAMETHASONE
     Indication: Stomatitis
     Dosage: 1 GRAM, QD
     Route: 003
     Dates: start: 20230824, end: 20230913
  10. ENCOVER [Concomitant]
     Indication: Decreased appetite
     Dosage: 3 BAG, TID, STRENGHT: 1 BAG
     Route: 048
     Dates: start: 20230831
  11. MEGESTROL [Concomitant]
     Active Substance: MEGESTROL
     Indication: Decreased appetite
     Dosage: 1 PACK, QOD, STRENGTH: 1 PACK
     Route: 048
     Dates: start: 20230831, end: 20231011
  12. EBASTINE [Concomitant]
     Active Substance: EBASTINE
     Indication: Pruritus
     Dosage: 10 MILLIGRAM, QD
     Route: 048
     Dates: start: 20230914
  13. EBASTINE [Concomitant]
     Active Substance: EBASTINE
     Dosage: 1 GRAM, ONCE
     Route: 042
     Dates: start: 20230914, end: 20230914
  14. DILTIAZEM HYDROCHLORIDE [Concomitant]
     Active Substance: DILTIAZEM HYDROCHLORIDE
     Indication: Hypertension
     Dosage: UNK
     Dates: start: 201301
  15. CONBLOC [Concomitant]
     Indication: Hypertension
     Dosage: UNK
     Dates: start: 201301
  16. UMCKAMIN PLUS [Concomitant]
  17. PROPACETAMOL HYDROCHLORIDE [Concomitant]
     Active Substance: PROPACETAMOL HYDROCHLORIDE
     Indication: Prophylaxis
     Dosage: 1 GRAM, ONCE
     Route: 042
     Dates: start: 20230914, end: 20230914
  18. DEXAMETHASONE [Concomitant]
     Active Substance: DEXAMETHASONE
     Indication: Prophylaxis
     Dosage: 10 MILLIGRAM, ONCE
     Route: 042
     Dates: start: 20230914, end: 20230914
  19. GASTER [Concomitant]
     Active Substance: FAMOTIDINE
     Indication: Prophylaxis
     Dosage: 20 MILLIGRAM, ONCE
     Route: 042
     Dates: start: 20230914, end: 20230914

REACTIONS (1)
  - Atrial fibrillation [Recovered/Resolved]

NARRATIVE: CASE EVENT DATE: 20230915
